FAERS Safety Report 10645091 (Version 1)
Quarter: 2014Q4

REPORT INFORMATION
  Report Type: Spontaneous
  Country: US (occurrence: None)
  Receive Date: 20141210
  Receipt Date: 20141210
  Transmission Date: 20150529
  Serious: Yes (Life-Threatening, Other)
  Sender: FDA-Public Use
  Company Number: None

PATIENT
  Age: 24 Year
  Sex: Female
  Weight: 68.04 kg

DRUGS (1)
  1. TAMIFLU [Suspect]
     Active Substance: OSELTAMIVIR PHOSPHATE
     Indication: INFLUENZA
     Dosage: 10 CAPSULES, TWICE DIALY TAKEN BY MOUTH
     Route: 048
     Dates: start: 20141202, end: 20141204

REACTIONS (13)
  - Swelling face [None]
  - Skin discolouration [None]
  - Gait disturbance [None]
  - Dyspnoea [None]
  - Movement disorder [None]
  - PO2 decreased [None]
  - Unevaluable event [None]
  - Drug hypersensitivity [None]
  - Vomiting [None]
  - Visual impairment [None]
  - Peripheral swelling [None]
  - Dehydration [None]
  - Hypoaesthesia [None]

NARRATIVE: CASE EVENT DATE: 20141203
